FAERS Safety Report 8159239-4 (Version None)
Quarter: 2012Q1

REPORT INFORMATION
  Report Type: 
  Country: None (occurrence: None)
  Receive Date: 20120223
  Receipt Date: 20120213
  Transmission Date: 20120608
  Serious: No
  Sender: FDA-Public Use
  Company Number: US-B.I. PHARMACEUTICALS,INC./RIDGEFIELD-2012-BP-02769BP

PATIENT
  Age: 85 Year
  Sex: Male

DRUGS (6)
  1. PRADAXA [Suspect]
     Indication: ATRIAL FIBRILLATION
     Dosage: 300 MG
     Route: 048
     Dates: start: 20101101
  2. HYOSCYAMINE [Concomitant]
  3. SOTALOL HCL [Concomitant]
  4. RANITIDINE [Concomitant]
     Dates: start: 20100324
  5. STOOL SOFTENER [Concomitant]
  6. VITAMIN-MINERAL COMPOUND TAB [Concomitant]
     Indication: EYE DISORDER

REACTIONS (5)
  - HYPERTENSION [None]
  - DYSPEPSIA [None]
  - ERUCTATION [None]
  - ABDOMINAL DISCOMFORT [None]
  - HYPOTHYROIDISM [None]
